FAERS Safety Report 5390994-2 (Version None)
Quarter: 2007Q3

REPORT INFORMATION
  Report Type: 
  Country: None (occurrence: None)
  Receive Date: 20070716
  Receipt Date: 20060106
  Transmission Date: 20080115
  Serious: Yes (Death)
  Sender: FDA-Public Use
  Company Number: MPS1-10473

PATIENT
  Age: 30 Year
  Sex: Male

DRUGS (8)
  1. ALDURAZYME [Suspect]
     Indication: MUCOPOLYSACCHARIDOSIS I
     Dates: start: 19980327, end: 20051203
  2. LASIX [Concomitant]
  3. COREG [Concomitant]
  4. ENALAPRIL MALEATE [Concomitant]
  5. WARFARIN SODIUM [Concomitant]
  6. ADVAIR DISKUS 100/50 [Concomitant]
  7. INSPRA [Concomitant]
  8. OXYGEN [Concomitant]

REACTIONS (5)
  - ATRIOVENTRICULAR BLOCK [None]
  - CARDIAC ARREST [None]
  - CARDIAC PSEUDOANEURYSM [None]
  - INTRACARDIAC THROMBUS [None]
  - SUDDEN CARDIAC DEATH [None]
